FAERS Safety Report 12876100 (Version 1)
Quarter: 2016Q4

REPORT INFORMATION
  Report Type: Spontaneous
  Country: US (occurrence: US)
  Receive Date: 20161024
  Receipt Date: 20161024
  Transmission Date: 20170207
  Serious: No
  Sender: FDA-Public Use
  Company Number: US-JAZZ-2016-US-015354

PATIENT
  Sex: Female

DRUGS (12)
  1. SERTRALINE [Concomitant]
     Active Substance: SERTRALINE HYDROCHLORIDE
  2. VITAMIN D3 [Concomitant]
     Active Substance: CHOLECALCIFEROL
  3. FLONASE [Concomitant]
     Active Substance: FLUTICASONE PROPIONATE
  4. NUVIGIL [Concomitant]
     Active Substance: ARMODAFINIL
  5. DICYCLOMINE [Concomitant]
     Active Substance: DICYCLOMINE HYDROCHLORIDE
  6. FISH OIL CONCENTRATE [Concomitant]
  7. ZYRTEC [Concomitant]
     Active Substance: CETIRIZINE HYDROCHLORIDE
  8. PRAMIPEXOLE. [Concomitant]
     Active Substance: PRAMIPEXOLE
  9. MELATONIN [Concomitant]
     Active Substance: MELATONIN
  10. XYREM [Suspect]
     Active Substance: SODIUM OXYBATE
     Indication: NARCOLEPSY
     Dosage: 2.25 G, BID
     Route: 048
     Dates: start: 201605, end: 201606
  11. XYREM [Suspect]
     Active Substance: SODIUM OXYBATE
     Indication: CATAPLEXY
     Dosage: 3.5 G, BID
     Route: 048
     Dates: start: 201606, end: 201607
  12. XYREM [Suspect]
     Active Substance: SODIUM OXYBATE
     Dosage: 4.5 G, BID
     Route: 048
     Dates: start: 201607

REACTIONS (3)
  - Irritable bowel syndrome [Not Recovered/Not Resolved]
  - Sensory disturbance [Unknown]
  - Anxiety [Unknown]

NARRATIVE: CASE EVENT DATE: 2016
